FAERS Safety Report 5429158-2 (Version None)
Quarter: 2007Q3

REPORT INFORMATION
  Report Type: 
  Country: None (occurrence: None)
  Receive Date: 20070824
  Receipt Date: 20070820
  Transmission Date: 20080115
  Serious: Yes (Hospitalization)
  Sender: FDA-Public Use
  Company Number: 6037085

PATIENT
  Age: 69 Year
  Sex: Female

DRUGS (2)
  1. CARDENSIEL 5 MG (5 MG, TABLET) (BISOPROLOL FUMARATE) [Suspect]
     Indication: HYPERTENSION
     Dosage: 5 MG (5 MG, 1 IN 1 D) ORAL
     Route: 048
     Dates: start: 20070601
  2. KENZEN (4 MG, TABLET) (CANDESARTAN CILEXETIL) [Suspect]
     Indication: HYPERTENSION
     Dosage: 4 MG (4 MG, 1 IN 1 D) ORAL
     Route: 048
     Dates: start: 20070601, end: 20070801

REACTIONS (1)
  - HAEMOLYTIC ANAEMIA [None]
